FAERS Safety Report 17206400 (Version 1)
Quarter: 2020Q1

REPORT INFORMATION
  Report Type: Spontaneous
  Country: US (occurrence: US)
  Receive Date: 20191226
  Receipt Date: 20191226
  Transmission Date: 20200409
  Serious: Yes (Death)
  Sender: FDA-Public Use
  Company Number: None

PATIENT
  Age: 50 Year
  Sex: Male
  Weight: 58.05 kg

DRUGS (5)
  1. DRONABINOL. [Concomitant]
     Active Substance: DRONABINOL
  2. OXYCODONE [Concomitant]
     Active Substance: OXYCODONE
  3. SULFAMETHOXAZOLE/TMP [Concomitant]
     Active Substance: SULFAMETHOXAZOLE\TRIMETHOPRIM
  4. HYCAMTIN [Suspect]
     Active Substance: TOPOTECAN HYDROCHLORIDE
     Indication: BONE CANCER
     Dosage: ?          OTHER FREQUENCY:3 CAPS X4/21;?
     Route: 048
     Dates: start: 20191025
  5. METOCLOPRAMIDE. [Concomitant]
     Active Substance: METOCLOPRAMIDE

REACTIONS (1)
  - Death [None]
